FAERS Safety Report 5907287-4 (Version None)
Quarter: 2008Q4

REPORT INFORMATION
  Report Type: 
  Country: None (occurrence: None)
  Receive Date: 20081003
  Receipt Date: 20080929
  Transmission Date: 20090506
  Serious: Yes (Hospitalization)
  Sender: FDA-Public Use
  Company Number: PHEH2008US08616

PATIENT
  Sex: Male

DRUGS (22)
  1. TEKTURNA [Suspect]
     Indication: HYPERTENSION
     Dosage: 150 MG, QD
     Route: 048
  2. TEKTURNA [Suspect]
     Dosage: 300 MG, QD
     Route: 048
     Dates: start: 20080501, end: 20080505
  3. ACE INHIBITOR NOS [Concomitant]
  4. ARB [Concomitant]
  5. INSULIN [Concomitant]
  6. STATIN [Concomitant]
  7. ASPIRIN [Concomitant]
  8. LASIX [Concomitant]
     Dosage: 20 MG, BID
  9. DIOVAN [Concomitant]
     Dosage: 320 MG, QD
  10. ACCUPRIL [Concomitant]
     Dosage: 40 MG, QD
  11. LABETALOL HCL [Concomitant]
     Dosage: 100 MG, BID
  12. LOVASTATIN [Concomitant]
     Dosage: 10 MG, QD
  13. SANCTURA [Concomitant]
     Dosage: 60 MG, QD
  14. SYNTHROID [Concomitant]
     Dosage: 0.05 MG, QD
  15. NORVASC [Concomitant]
     Dosage: 10 MG, QD
  16. VERAPAMIL [Concomitant]
     Dosage: 180 MG, QD
  17. NEURONTIN [Concomitant]
     Dosage: 600 MG, BID
  18. AVINZA [Concomitant]
     Dosage: 60 MG, QD
  19. BUSPAR [Concomitant]
     Dosage: 15 MG, QD
  20. HUMALOG [Concomitant]
     Dosage: 3 U, BEFORE MEALS
  21. LANTUS [Concomitant]
     Dosage: 7 U, QHS
  22. REMERON [Concomitant]
     Dosage: 15 MG, QHS

REACTIONS (3)
  - ASTHENIA [None]
  - BLOOD CREATININE INCREASED [None]
  - FATIGUE [None]
